FAERS Safety Report 9773185 (Version 3)
Quarter: 2014Q1

REPORT INFORMATION
  Report Type: Spontaneous
  Country: IT (occurrence: IT)
  Receive Date: 20131219
  Receipt Date: 20140131
  Transmission Date: 20141002
  Serious: Yes (Other)
  Sender: FDA-Public Use
  Company Number: IT-PFIZER INC-2013364798

PATIENT
  Age: 18 Year
  Sex: Female

DRUGS (3)
  1. ZOLOFT [Suspect]
     Dosage: 30 DF, TOTAL
     Route: 048
  2. MEDROL [Suspect]
     Dosage: 20 DF, TOTAL
  3. POLARAMIN [Suspect]
     Dosage: 20 DF, TOTAL

REACTIONS (2)
  - Drug abuse [Recovered/Resolved]
  - Confusional state [Recovered/Resolved]
